FAERS Safety Report 6825383-4 (Version None)
Quarter: 2010Q3

REPORT INFORMATION
  Report Type: 
  Country: None (occurrence: None)
  Receive Date: 20100708
  Receipt Date: 20061201
  Transmission Date: 20110219
  Serious: No
  Sender: FDA-Public Use
  Company Number: US-PFIZER INC-2006151856

PATIENT
  Sex: Female
  Weight: 54.43 kg

DRUGS (3)
  1. CHANTIX [Suspect]
     Indication: SMOKING CESSATION THERAPY
     Dates: start: 20061122
  2. AMOXICILLIN [Suspect]
     Indication: SURGERY
  3. ESTROTEST [Concomitant]

REACTIONS (2)
  - IMPAIRED WORK ABILITY [None]
  - NAUSEA [None]
